FAERS Safety Report 23431789 (Version 1)
Quarter: 2024Q1

REPORT INFORMATION
  Report Type: Spontaneous
  Country: DE (occurrence: DE)
  Receive Date: 20240123
  Receipt Date: 20240123
  Transmission Date: 20240410
  Serious: Yes (Other)
  Sender: FDA-Public Use
  Company Number: DE-SUN PHARMACEUTICAL INDUSTRIES LTD-2024RR-427756

PATIENT
  Age: 69 Year

DRUGS (10)
  1. OXALIPLATIN [Suspect]
     Active Substance: OXALIPLATIN
     Indication: Cholangiocarcinoma
     Dosage: 100 MILLIGRAM/SQ. METER, 12 CYCLES
     Route: 040
     Dates: start: 201907, end: 202002
  2. LEUCOVORIN CALCIUM [Suspect]
     Active Substance: LEUCOVORIN CALCIUM
     Indication: Cholangiocarcinoma
     Dosage: 400 MILLIGRAM/SQ. METER, 12 CYCLES
     Route: 040
     Dates: start: 201907, end: 202002
  3. LEUCOVORIN CALCIUM [Suspect]
     Active Substance: LEUCOVORIN CALCIUM
     Dosage: 400 MILLIGRAM/SQ. METER
     Route: 040
     Dates: start: 202002, end: 202003
  4. CISPLATIN [Suspect]
     Active Substance: CISPLATIN
     Indication: Cholangiocarcinoma
     Dosage: 25 MILLIGRAM/SQ. METER
     Route: 065
     Dates: start: 201711, end: 201907
  5. GEMCITABINE [Suspect]
     Active Substance: GEMCITABINE
     Indication: Product used for unknown indication
     Dosage: 1000 MILLIGRAM/SQ. METER
     Route: 065
     Dates: start: 201711, end: 201907
  6. IRINOTECAN [Suspect]
     Active Substance: IRINOTECAN
     Indication: Disease progression
     Dosage: 180 MILLIGRAM/SQ. METER, 4 CYCLES
     Route: 040
     Dates: start: 202002, end: 202003
  7. AZACITIDINE [Suspect]
     Active Substance: AZACITIDINE
     Indication: Acute myeloid leukaemia
     Dosage: 75 MILLIGRAM/SQ. METER (DAY 1?5)
     Route: 065
  8. FLUOROURACIL [Suspect]
     Active Substance: FLUOROURACIL
     Indication: Cholangiocarcinoma
     Dosage: 400 MILLIGRAM/SQ. METER, 12 CYCLES
     Route: 040
     Dates: start: 201907, end: 202002
  9. FLUOROURACIL [Suspect]
     Active Substance: FLUOROURACIL
     Dosage: 3000  MG/M2, INFUSION
     Route: 065
  10. FLUOROURACIL [Suspect]
     Active Substance: FLUOROURACIL
     Dosage: 400 MILLIGRAM/SQ. METER
     Route: 040
     Dates: start: 202002, end: 202003

REACTIONS (3)
  - Disease progression [Unknown]
  - Drug ineffective [Unknown]
  - Pneumonia [Unknown]
